FAERS Safety Report 5210366-0 (Version None)
Quarter: 2007Q1

REPORT INFORMATION
  Report Type: 
  Country: None (occurrence: None)
  Receive Date: 20070117
  Receipt Date: 20070115
  Transmission Date: 20070707
  Serious: Yes (Hospitalization)
  Sender: FDA-Public Use
  Company Number: US-BRISTOL-MYERS SQUIBB COMPANY-13630355

PATIENT
  Age: 77 Year
  Sex: Male

DRUGS (15)
  1. CARBOPLATIN [Suspect]
     Indication: NON-SMALL CELL LUNG CANCER
  2. PACLITAXEL [Suspect]
     Indication: NON-SMALL CELL LUNG CANCER
  3. BLINDED: SORAFENIB [Suspect]
     Indication: NON-SMALL CELL LUNG CANCER
     Route: 048
     Dates: start: 20060526, end: 20061212
  4. BLINDED: PLACEBO [Suspect]
     Indication: NON-SMALL CELL LUNG CANCER
     Route: 048
     Dates: start: 20060526, end: 20061212
  5. MULTI-VITAMIN [Concomitant]
     Indication: MEDICAL DIET
     Route: 048
     Dates: start: 20060601
  6. ZANTAC [Concomitant]
     Indication: PEPTIC ULCER
     Route: 048
     Dates: start: 20060615
  7. VITAMIN B6 [Concomitant]
     Indication: NEUROPATHY PERIPHERAL
     Route: 048
     Dates: start: 20060914
  8. LYRICA [Concomitant]
     Indication: NEUROPATHY PERIPHERAL
     Route: 048
     Dates: start: 20061122
  9. HYDROCODONE [Concomitant]
     Indication: PAIN
     Dates: start: 20060701
  10. LORAZEPAM [Concomitant]
     Indication: INSOMNIA
     Route: 048
  11. TUMS [Concomitant]
     Indication: MINERAL SUPPLEMENTATION
     Route: 048
  12. ASPIRIN [Concomitant]
     Indication: CARDIOVASCULAR EVENT PROPHYLAXIS
     Route: 048
  13. ZOMETA [Concomitant]
     Route: 042
     Dates: start: 20060526
  14. HYTRIN [Concomitant]
     Indication: BENIGN PROSTATIC HYPERPLASIA
     Route: 048
     Dates: end: 20061202
  15. AVODART [Concomitant]
     Indication: BENIGN PROSTATIC HYPERPLASIA
     Route: 048
     Dates: end: 20061202

REACTIONS (3)
  - ACUTE RESPIRATORY FAILURE [None]
  - PLEURAL EFFUSION [None]
  - PNEUMONIA [None]
